FAERS Safety Report 25118365 (Version 1)
Quarter: 2025Q1

REPORT INFORMATION
  Report Type: Report from Study
  Country: US (occurrence: US)
  Receive Date: 20250325
  Receipt Date: 20250325
  Transmission Date: 20250409
  Serious: Yes (Other)
  Sender: VERONA PHARMA
  Company Number: US-VERONA PHARMA-VER-003793

PATIENT
  Sex: Male
  Weight: 72.73 kg

DRUGS (1)
  1. OHTUVAYRE [Suspect]
     Active Substance: ENSIFENTRINE
     Indication: Chronic obstructive pulmonary disease
     Dosage: 3 MILLIGRAM, BID
     Dates: start: 20250125, end: 20250218

REACTIONS (3)
  - Tunnel vision [Recovered/Resolved]
  - Dizziness [Unknown]
  - Vision blurred [Recovered/Resolved]
